FAERS Safety Report 11965634 (Version 1)
Quarter: 2016Q1

REPORT INFORMATION
  Report Type: Spontaneous
  Country: US (occurrence: None)
  Receive Date: 20160126
  Receipt Date: 20160126
  Transmission Date: 20160526
  Serious: Yes (Hospitalization)
  Sender: FDA-Public Use
  Company Number: None

PATIENT
  Age: 11 Year
  Sex: Male
  Weight: 23.13 kg

DRUGS (1)
  1. FACTOR 8 ZYNTHA [Suspect]
     Active Substance: FACTOR XIII CONCENTRATE (HUMAN)
     Indication: HAEMORRHAGE PROPHYLAXIS
     Dosage: 500 IU+25IU TWICE A WEEK INTO A VEIN
     Route: 042

REACTIONS (4)
  - Nausea [None]
  - Headache [None]
  - Vomiting [None]
  - Vision blurred [None]
